FAERS Safety Report 7050348-X (Version None)
Quarter: 2010Q4

REPORT INFORMATION
  Report Type: 
  Country: None (occurrence: None)
  Receive Date: 20101013
  Receipt Date: 20100928
  Transmission Date: 20110411
  Serious: Yes (Congenital Anomaly)
  Sender: FDA-Public Use
  Company Number: AUR-APL-2010-02405

PATIENT

DRUGS (3)
  1. SERTRALINE HYDROCHLORIDE [Suspect]
     Indication: MATERNAL CONDITION AFFECTING FOETUS
     Dosage: 50MG-TID-TRANSPLACENTAL
     Route: 064
  2. SERTRALINE HYDROCHLORIDE [Suspect]
     Indication: PSYCHOTIC DISORDER
     Dosage: 50MG-TID-TRANSPLACENTAL
     Route: 064
  3. FERROUS FUMARATE [Concomitant]

REACTIONS (2)
  - CONGENITAL HYPOTHYROIDISM [None]
  - MATERNAL DRUGS AFFECTING FOETUS [None]
